FAERS Safety Report 4403587-8 (Version None)
Quarter: 2004Q3

REPORT INFORMATION
  Report Type: 
  Country: None (occurrence: None)
  Receive Date: 20040721
  Receipt Date: 20040712
  Transmission Date: 20050211
  Serious: Yes (Hospitalization)
  Sender: FDA-Public Use
  Company Number: FR-GLAXOSMITHKLINE-B0338603A

PATIENT
  Age: 66 Year
  Sex: Male

DRUGS (12)
  1. AUGMENTIN '250' [Suspect]
     Indication: ILL-DEFINED DISORDER
     Dosage: 3UNIT PER DAY
     Route: 048
     Dates: start: 20040525
  2. CALCIPARINE [Suspect]
     Dosage: 2UNIT PER DAY
     Route: 058
     Dates: start: 20040527, end: 20040614
  3. POTASSIUM PERCHLORATE SOLUTION [Suspect]
     Dosage: 5UNIT PER DAY
     Route: 048
     Dates: start: 20040525
  4. NOVORAPID [Suspect]
     Route: 065
     Dates: start: 20040602
  5. NEO-MERCAZOLE TAB [Suspect]
     Dosage: 60MG PER DAY
     Route: 048
     Dates: start: 20040525
  6. ADANCOR [Concomitant]
     Route: 048
  7. PRAVASTATIN [Concomitant]
     Route: 048
  8. CARDENSIEL [Concomitant]
     Route: 048
  9. DIFFU K [Concomitant]
     Route: 048
  10. LASIX [Concomitant]
     Route: 065
  11. ASPIRIN [Concomitant]
     Route: 048
  12. PARIET [Concomitant]
     Route: 048

REACTIONS (2)
  - DERMATITIS [None]
  - PRURITUS [None]
